FAERS Safety Report 13948346 (Version 1)
Quarter: 2017Q3

REPORT INFORMATION
  Report Type: Spontaneous
  Country: US (occurrence: US)
  Receive Date: 20170908
  Receipt Date: 20170908
  Transmission Date: 20171128
  Serious: No
  Sender: FDA-Public Use
  Company Number: US-009507513-1708USA013681

PATIENT
  Age: 39 Year
  Sex: Female
  Weight: 85.71 kg

DRUGS (1)
  1. NEXPLANON [Suspect]
     Active Substance: ETONOGESTREL
     Route: 059

REACTIONS (3)
  - Device breakage [Recovered/Resolved]
  - Product quality issue [Unknown]
  - Device difficult to use [Recovered/Resolved]
